FAERS Safety Report 4533744-1 (Version None)
Quarter: 2004Q4

REPORT INFORMATION
  Report Type: 
  Country: None (occurrence: None)
  Receive Date: 20041221
  Receipt Date: 20041103
  Transmission Date: 20050328
  Serious: Yes (Death, Life-Threatening, Hospitalization)
  Sender: FDA-Public Use
  Company Number: DE-ABBOTT-04P-062-0279804-00

PATIENT
  Sex: Male
  Weight: 100 kg

DRUGS (5)
  1. KLACID PRO [Suspect]
     Indication: BRONCHITIS CHRONIC
     Dosage: 1000 MILLIGRAMS ON INITIAL DAY (2 TABS TWICE/DAY), THEN 500 MILLIGRAMS ON FOLLOWING DAYS
     Route: 048
     Dates: start: 20040930, end: 20040930
  2. KLACID PRO [Suspect]
     Route: 048
     Dates: start: 20041001, end: 20041007
  3. BLOPRESS PLUS [Concomitant]
     Indication: HYPERTENSION
     Route: 048
  4. METOPROLOL TARTRATE [Concomitant]
     Indication: HYPERTENSION
     Route: 048
  5. LERCANIDIPINE [Concomitant]
     Indication: HYPERTENSION
     Route: 048

REACTIONS (2)
  - MULTI-ORGAN FAILURE [None]
  - PANCREATITIS ACUTE [None]
